FAERS Safety Report 9909756 (Version 1)
Quarter: 2014Q1

REPORT INFORMATION
  Report Type: Spontaneous
  Country: US (occurrence: US)
  Receive Date: 20140219
  Receipt Date: 20140219
  Transmission Date: 20141002
  Serious: No
  Sender: FDA-Public Use
  Company Number: US-PFIZER INC-2014047992

PATIENT
  Sex: Female

DRUGS (2)
  1. CHANTIX [Suspect]
     Indication: SMOKING CESSATION THERAPY
     Dosage: 1 DF, 1X/DAY
  2. CHANTIX [Suspect]
     Dosage: 2 DF, 1X/DAY

REACTIONS (1)
  - Abnormal dreams [Unknown]
